FAERS Safety Report 7670797-6 (Version None)
Quarter: 2011Q3

REPORT INFORMATION
  Report Type: 
  Country: None (occurrence: None)
  Receive Date: 20110803
  Receipt Date: 20110725
  Transmission Date: 20111222
  Serious: Yes (Hospitalization)
  Sender: FDA-Public Use
  Company Number: CIP11001846

PATIENT
  Age: 66 Year
  Sex: Male

DRUGS (12)
  1. NORVASC [Concomitant]
  2. TICLID [Concomitant]
  3. ACTONEL [Suspect]
     Indication: OSTEOPENIA
     Dosage: 35 MG ONCE WEEKLY, ORAL
     Route: 048
     Dates: start: 20041215
  4. TENORETIC 100 [Concomitant]
  5. PREDNISONE [Concomitant]
  6. ZETIA [Concomitant]
  7. PLENDIL [Concomitant]
  8. ZOCOR [Concomitant]
  9. FUROSEMIDE [Concomitant]
  10. SALSALATE (SALSALATE) [Concomitant]
  11. RELAFEN [Concomitant]
  12. IMURAN [Concomitant]

REACTIONS (16)
  - SWELLING FACE [None]
  - DENTAL CARIES [None]
  - OSTEOMYELITIS CHRONIC [None]
  - OSTEONECROSIS OF JAW [None]
  - MASTICATION DISORDER [None]
  - TENDERNESS [None]
  - EXCESSIVE GRANULATION TISSUE [None]
  - PURULENT DISCHARGE [None]
  - TREATMENT NONCOMPLIANCE [None]
  - PAIN IN JAW [None]
  - WOUND DEHISCENCE [None]
  - GINGIVAL SWELLING [None]
  - INFLAMMATION [None]
  - OSTEOMYELITIS ACUTE [None]
  - LOCAL SWELLING [None]
  - WHITE BLOOD CELL COUNT INCREASED [None]
